FAERS Safety Report 21861718 (Version 1)
Quarter: 2023Q1

REPORT INFORMATION
  Report Type: Spontaneous
  Country: US (occurrence: US)
  Receive Date: 20230113
  Receipt Date: 20230113
  Transmission Date: 20230417
  Serious: No
  Sender: FDA-Public Use
  Company Number: US-BAYER-2023A003036

PATIENT

DRUGS (3)
  1. ALEVE [Suspect]
     Active Substance: NAPROXEN SODIUM
     Indication: Headache
  2. ALEVE [Suspect]
     Active Substance: NAPROXEN SODIUM
     Indication: Migraine
  3. ALEVE [Suspect]
     Active Substance: NAPROXEN SODIUM
     Indication: Pain

REACTIONS (1)
  - Drug effective for unapproved indication [Unknown]
